FAERS Safety Report 24669897 (Version 2)
Quarter: 2025Q3

REPORT INFORMATION
  Report Type: Spontaneous
  Country: US (occurrence: US)
  Receive Date: 20241127
  Receipt Date: 20250825
  Transmission Date: 20251020
  Serious: Yes (Other)
  Sender: BLUEPRINT MEDICINES
  Company Number: US-Blueprint Medicines Corporation-5433

PATIENT
  Age: 51 Year
  Sex: Female

DRUGS (4)
  1. AYVAKIT [Suspect]
     Active Substance: AVAPRITINIB
     Indication: Haematopoietic neoplasm
     Route: 065
     Dates: start: 20231203
  2. AYVAKIT [Suspect]
     Active Substance: AVAPRITINIB
     Route: 065
     Dates: start: 20231203
  3. MONTELUKAST [Concomitant]
     Active Substance: MONTELUKAST
     Indication: Product used for unknown indication
     Route: 065
  4. PEPCID [Concomitant]
     Active Substance: FAMOTIDINE
     Indication: Product used for unknown indication
     Route: 065

REACTIONS (13)
  - Mast cell activation syndrome [Recovered/Resolved]
  - Skin lesion [Unknown]
  - Condition aggravated [Unknown]
  - Inflammation [Unknown]
  - Rash macular [Unknown]
  - White blood cell count decreased [Unknown]
  - Fatigue [Unknown]
  - Feeling cold [Unknown]
  - Anaemia [Unknown]
  - Adverse drug reaction [Unknown]
  - Hair colour changes [Unknown]
  - Blepharospasm [Unknown]
  - Dry eye [Unknown]
